FAERS Safety Report 9489398 (Version 1)
Quarter: 2013Q3

REPORT INFORMATION
  Report Type: Spontaneous
  Country: PL (occurrence: PL)
  Receive Date: 20130829
  Receipt Date: 20130829
  Transmission Date: 20140515
  Serious: Yes (Hospitalization)
  Sender: FDA-Public Use
  Company Number: PHHY2013PL091907

PATIENT
  Age: 37 Year
  Sex: Female
  Weight: 64 kg

DRUGS (4)
  1. AMOKSIKLAV [Suspect]
     Indication: PHARYNGITIS
     Dosage: 1000 MG, BID
     Route: 048
     Dates: start: 20130207, end: 20130207
  2. CHLORCHINALDIN [Concomitant]
  3. PYRALGIN [Concomitant]
  4. HERBAPECT [Concomitant]

REACTIONS (2)
  - Dyspnoea [Unknown]
  - Urticaria [Unknown]
